FAERS Safety Report 8462924-8 (Version None)
Quarter: 2012Q2

REPORT INFORMATION
  Report Type: 
  Country: None (occurrence: None)
  Receive Date: 20120625
  Receipt Date: 20111003
  Transmission Date: 20120825
  Serious: Yes (Other)
  Sender: FDA-Public Use
  Company Number: US-ROCHE-1002274

PATIENT
  Sex: Female

DRUGS (1)
  1. BONIVA [Suspect]
     Indication: PRODUCT USED FOR UNKNOWN INDICATION

REACTIONS (7)
  - LOSS OF CONSCIOUSNESS [None]
  - UPPER LIMB FRACTURE [None]
  - RIB FRACTURE [None]
  - TOOTH ABSCESS [None]
  - FALL [None]
  - HEAD INJURY [None]
  - DIZZINESS [None]
